FAERS Safety Report 10362785 (Version 1)
Quarter: 2014Q3

REPORT INFORMATION
  Report Type: Spontaneous
  Country: US (occurrence: None)
  Receive Date: 20140804
  Receipt Date: 20140804
  Transmission Date: 20150326
  Serious: Yes (Hospitalization)
  Sender: FDA-Public Use
  Company Number: None

PATIENT
  Age: 83 Year
  Sex: Female
  Weight: 53 kg

DRUGS (10)
  1. TRAMADOL 50 MG [Suspect]
     Active Substance: TRAMADOL
     Indication: CERVICAL MYELOPATHY
     Dosage: 1-2 TABLETS PRN/ AS NEEDED ORAL
     Route: 048
  2. ZOLPIDEM [Concomitant]
     Active Substance: ZOLPIDEM\ZOLPIDEM TARTRATE
  3. DOCUSATE/SENNA [Concomitant]
  4. MELOXICAM. [Concomitant]
     Active Substance: MELOXICAM
  5. ACETAMINOPHEN AND CODEINE [Concomitant]
     Active Substance: ACETAMINOPHEN\CODEINE PHOSPHATE
  6. ASPIRIN. [Concomitant]
     Active Substance: ASPIRIN
  7. GABAPENTIN 300 MG [Suspect]
     Active Substance: GABAPENTIN
     Indication: CERVICAL MYELOPATHY
     Route: 048
  8. VALSARTAN AND HYDROCHLOROTHIAZIDE [Concomitant]
     Active Substance: HYDROCHLOROTHIAZIDE\VALSARTAN
  9. TRAMADOL 50 MG [Suspect]
     Active Substance: TRAMADOL
     Indication: PAIN
     Dosage: 1-2 TABLETS PRN/ AS NEEDED ORAL
     Route: 048
  10. SIMVASTATIN. [Concomitant]
     Active Substance: SIMVASTATIN

REACTIONS (4)
  - Hyponatraemia [None]
  - Asthenia [None]
  - Confusional state [None]
  - Urinary tract infection [None]

NARRATIVE: CASE EVENT DATE: 20140225
